FAERS Safety Report 17902896 (Version 1)
Quarter: 2020Q2

REPORT INFORMATION
  Report Type: Spontaneous
  Country: US (occurrence: US)
  Receive Date: 20200617
  Receipt Date: 20200617
  Transmission Date: 20200714
  Serious: No
  Sender: FDA-Public Use
  Company Number: US-TEVA-2020-US-1788124

PATIENT
  Sex: Female

DRUGS (1)
  1. IVERMECTIN TEVA [Suspect]
     Active Substance: IVERMECTIN
     Indication: ROSACEA
     Route: 061

REACTIONS (5)
  - Paraesthesia [Unknown]
  - Product substitution issue [Unknown]
  - Product physical consistency issue [Unknown]
  - Burning sensation [Unknown]
  - Erythema [Unknown]
